FAERS Safety Report 22321453 (Version 1)
Quarter: 2023Q2

REPORT INFORMATION
  Report Type: Spontaneous
  Country: SE (occurrence: SE)
  Receive Date: 20230515
  Receipt Date: 20230515
  Transmission Date: 20230721
  Serious: Yes (Death)
  Sender: FDA-Public Use
  Company Number: SE-ORGANON-O2305SWE001435

PATIENT
  Age: 23 Year
  Sex: Male

DRUGS (6)
  1. MIRTAZAPINE [Interacting]
     Active Substance: MIRTAZAPINE
     Dosage: UNK
     Route: 048
  2. OXYBATE [Interacting]
     Active Substance: OXYBATE
     Dosage: UNK
  3. AMPHETAMINE [Interacting]
     Active Substance: AMPHETAMINE
     Dosage: UNK
  4. COCAINE [Interacting]
     Active Substance: COCAINE
     Dosage: UNK
  5. DIAZEPAM [Interacting]
     Active Substance: DIAZEPAM
     Dosage: UNK
  6. ACETAMINOPHEN [Interacting]
     Active Substance: ACETAMINOPHEN
     Dosage: UNK

REACTIONS (2)
  - Toxicity to various agents [Fatal]
  - Drug interaction [Fatal]
